FAERS Safety Report 9290729 (Version 1)
Quarter: 2013Q2

REPORT INFORMATION
  Report Type: Spontaneous
  Country: US (occurrence: None)
  Receive Date: 20130513
  Receipt Date: 20130513
  Transmission Date: 20140414
  Serious: Yes (Death, Hospitalization)
  Sender: FDA-Public Use
  Company Number: 2013US001545

PATIENT
  Age: 76 Year
  Sex: Male
  Weight: 71 kg

DRUGS (1)
  1. ICLUSIG [Suspect]
     Indication: ACUTE LYMPHOCYTIC LEUKAEMIA
     Dosage: 45 MG, UNK, ORAL
     Route: 048
     Dates: start: 20130413, end: 20130417

REACTIONS (4)
  - Sepsis [None]
  - Abdominal pain upper [None]
  - Acute lymphocytic leukaemia [None]
  - Malignant neoplasm progression [None]
